FAERS Safety Report 4995374-7 (Version None)
Quarter: 2006Q2

REPORT INFORMATION
  Report Type: 
  Country: None (occurrence: None)
  Receive Date: 20060508
  Receipt Date: 20060428
  Transmission Date: 20061013
  Serious: Yes (Other)
  Sender: FDA-Public Use
  Company Number: 2006CG00763

PATIENT
  Age: 657 Month
  Sex: Female
  Weight: 44 kg

DRUGS (3)
  1. CRESTOR [Suspect]
     Indication: HYPERCHOLESTEROLAEMIA
     Route: 048
     Dates: start: 20051225, end: 20060131
  2. SERESTA [Concomitant]
  3. EQUANIL [Concomitant]

REACTIONS (10)
  - BLOOD CREATINE PHOSPHOKINASE INCREASED [None]
  - DYSGRAPHIA [None]
  - FALL [None]
  - FATIGUE [None]
  - HEMIPLEGIA [None]
  - OEDEMA PERIPHERAL [None]
  - PAIN IN EXTREMITY [None]
  - RIB FRACTURE [None]
  - VISUAL ACUITY REDUCED [None]
  - WEIGHT DECREASED [None]
